FAERS Safety Report 8178721-7 (Version None)
Quarter: 2012Q1

REPORT INFORMATION
  Report Type: 
  Country: None (occurrence: None)
  Receive Date: 20120301
  Receipt Date: 20120301
  Transmission Date: 20120608
  Serious: Yes (Other)
  Sender: FDA-Public Use
  Company Number: None

PATIENT
  Age: 76 Year
  Sex: Female
  Weight: 68.038 kg

DRUGS (1)
  1. SPIRIVA [Suspect]
     Indication: LUNG DISORDER
     Dosage: 1 PUFF
     Route: 034
     Dates: start: 20101210, end: 20120229

REACTIONS (2)
  - DEVICE MATERIAL ISSUE [None]
  - FOREIGN BODY ASPIRATION [None]
